FAERS Safety Report 4317077-4 (Version None)
Quarter: 2004Q1

REPORT INFORMATION
  Report Type: 
  Country: None (occurrence: None)
  Receive Date: 20040312
  Receipt Date: 20040225
  Transmission Date: 20041129
  Serious: Yes (Hospitalization)
  Sender: FDA-Public Use
  Company Number: S04-SWE-00867-01

PATIENT
  Age: 78 Year
  Sex: Male

DRUGS (4)
  1. ESCITALOPRAM OXALATE [Suspect]
     Dosage: 10 MG QD PO
     Route: 048
  2. PLAVIX [Suspect]
     Dosage: 75 MG QD PO
     Route: 048
     Dates: start: 19980101, end: 20031107
  3. SINALFA (TERAZOSIN HYDROCHLORIDE) [Concomitant]
  4. PANTOPRAZOLE [Concomitant]

REACTIONS (4)
  - DYSPEPSIA [None]
  - HAEMOGLOBIN DECREASED [None]
  - HIATUS HERNIA [None]
  - RECTAL HAEMORRHAGE [None]
